FAERS Safety Report 15659299 (Version 2)
Quarter: 2023Q1

REPORT INFORMATION
  Report Type: Report from Study
  Country: US (occurrence: US)
  Receive Date: 20181127
  Receipt Date: 20230105
  Transmission Date: 20230417
  Serious: Yes (Other)
  Sender: FDA-Public Use
  Company Number: US-SHIRE-US201842552

PATIENT
  Sex: Male
  Weight: 80 kg

DRUGS (3)
  1. CARBAMAZEPINE [Suspect]
     Active Substance: CARBAMAZEPINE
     Indication: Product used for unknown indication
     Dosage: UNK
     Route: 065
  2. AZELASTINE HYDROCHLORIDE [Concomitant]
     Active Substance: AZELASTINE HYDROCHLORIDE
     Indication: Hypersensitivity
     Dosage: UNK
     Route: 065
  3. ZANTAC [Concomitant]
     Active Substance: RANITIDINE HYDROCHLORIDE
     Indication: Gastrooesophageal reflux disease
     Dosage: 1500 MILLIGRAM, QD
     Route: 065
     Dates: start: 2017

REACTIONS (13)
  - Seizure [Recovered/Resolved]
  - Urinary retention [Unknown]
  - Somnolence [Unknown]
  - Pruritus [Unknown]
  - Hyperhidrosis [Unknown]
  - Heart rate increased [Unknown]
  - Nocturia [Unknown]
  - Burning sensation [Unknown]
  - Thirst [Unknown]
  - Rash [Recovered/Resolved]
  - Confusional state [Recovered/Resolved]
  - Dry mouth [Unknown]
  - Chills [Unknown]
